FAERS Safety Report 7562584-4 (Version None)
Quarter: 2011Q2

REPORT INFORMATION
  Report Type: 
  Country: None (occurrence: None)
  Receive Date: 20110622
  Receipt Date: 20110616
  Transmission Date: 20111010
  Serious: Yes (Hospitalization)
  Sender: FDA-Public Use
  Company Number: US-SANOFI-AVENTIS-2011SA038512

PATIENT
  Age: 87 Year
  Sex: Female

DRUGS (2)
  1. MULTAQ [Suspect]
     Route: 048
     Dates: start: 20110111, end: 20110201
  2. MULTAQ [Suspect]
     Route: 048
     Dates: start: 20110201, end: 20110615

REACTIONS (5)
  - TREMOR [None]
  - DYSPNOEA [None]
  - NERVOUSNESS [None]
  - FATIGUE [None]
  - UNDERDOSE [None]
